FAERS Safety Report 8151939-5 (Version None)
Quarter: 2012Q1

REPORT INFORMATION
  Report Type: 
  Country: None (occurrence: None)
  Receive Date: 20120221
  Receipt Date: 20120215
  Transmission Date: 20120608
  Serious: Yes (Other)
  Sender: FDA-Public Use
  Company Number: US-PFIZER INC-2012041598

PATIENT
  Sex: Male
  Weight: 104.31 kg

DRUGS (3)
  1. NEURONTIN [Suspect]
     Indication: SCLERODERMA
  2. NEURONTIN [Suspect]
     Indication: NEUROPATHY PERIPHERAL
     Dosage: 1200 MG, 3X/DAY
     Route: 048
  3. NEURONTIN [Suspect]
     Indication: NERVE INJURY
     Dosage: 1200 MG, 1X/DAY
     Route: 048
     Dates: start: 19950101

REACTIONS (1)
  - BLOOD CHOLESTEROL INCREASED [None]
